FAERS Safety Report 5026836-4 (Version None)
Quarter: 2006Q2

REPORT INFORMATION
  Report Type: 
  Country: None (occurrence: None)
  Receive Date: 20060608
  Receipt Date: 20060420
  Transmission Date: 20061013
  Serious: Yes (Hospitalization)
  Sender: FDA-Public Use
  Company Number: DEPFP-S-20060016

PATIENT
  Age: 65 Year
  Sex: Female

DRUGS (3)
  1. NAVELBINE [Suspect]
     Indication: NON-SMALL CELL LUNG CANCER
     Dosage: 20 MG/M2 DAILY IV
     Route: 042
     Dates: start: 20060328, end: 20060404
  2. PACLITAXEL [Suspect]
     Indication: NON-SMALL CELL LUNG CANCER
     Dates: start: 20060118, end: 20060303
  3. CISPLATIN [Suspect]
     Indication: NON-SMALL CELL LUNG CANCER
     Dates: start: 20060328, end: 20060404

REACTIONS (2)
  - LEUKOPENIA [None]
  - PULMONARY EMBOLISM [None]
